FAERS Safety Report 17121808 (Version 1)
Quarter: 2019Q4

REPORT INFORMATION
  Report Type: Spontaneous
  Country: US (occurrence: US)
  Receive Date: 20191206
  Receipt Date: 20191206
  Transmission Date: 20200122
  Serious: No
  Sender: FDA-Public Use
  Company Number: US-NOVOPROD-651681

PATIENT
  Sex: Male
  Weight: 77 kg

DRUGS (2)
  1. NOVOLIN R [Suspect]
     Active Substance: INSULIN HUMAN
     Indication: LATENT AUTOIMMUNE DIABETES IN ADULTS
     Dosage: UNK
     Route: 058
  2. HUMALOG [Suspect]
     Active Substance: INSULIN LISPRO
     Indication: LATENT AUTOIMMUNE DIABETES IN ADULTS
     Dosage: UNK
     Route: 058

REACTIONS (5)
  - Blood glucose decreased [Unknown]
  - Cortisol abnormal [Not Recovered/Not Resolved]
  - Insulin resistance [Not Recovered/Not Resolved]
  - Drug ineffective [Unknown]
  - Stress [Not Recovered/Not Resolved]
